FAERS Safety Report 14617155 (Version 1)
Quarter: 2018Q1

REPORT INFORMATION
  Report Type: Spontaneous
  Country: JP (occurrence: JP)
  Receive Date: 20180309
  Receipt Date: 20180309
  Transmission Date: 20180509
  Serious: Yes (Death, Other)
  Sender: FDA-Public Use
  Company Number: JP-009507513-1705JPN000709J

PATIENT
  Age: 78 Year
  Sex: Female
  Weight: 37 kg

DRUGS (1)
  1. KEYTRUDA [Suspect]
     Active Substance: PEMBROLIZUMAB
     Indication: LUNG ADENOCARCINOMA
     Dosage: 200 MG, Q3W
     Route: 041
     Dates: start: 20170301, end: 20170412

REACTIONS (3)
  - Malignant neoplasm progression [Not Recovered/Not Resolved]
  - Death [Fatal]
  - EGFR gene mutation [Unknown]

NARRATIVE: CASE EVENT DATE: 2017
